FAERS Safety Report 5069376-9 (Version None)
Quarter: 2006Q3

REPORT INFORMATION
  Report Type: 
  Country: None (occurrence: None)
  Receive Date: 20060803
  Receipt Date: 20060727
  Transmission Date: 20061208
  Serious: Yes (Hospitalization)
  Sender: FDA-Public Use
  Company Number: CH-AVENTIS-200614161EU

PATIENT
  Age: 71 Year
  Sex: Female
  Weight: 58 kg

DRUGS (24)
  1. CLEXANE [Suspect]
     Indication: PARAPLEGIA
     Dosage: ROUTE: GASTROSTOMY TUBE
     Route: 050
     Dates: start: 20060309, end: 20060603
  2. CLEXANE [Suspect]
     Dosage: ROUTE: GASTROSTOMY TUBE
     Route: 050
     Dates: start: 20060604, end: 20060619
  3. CLEXANE [Suspect]
     Indication: QUADRIPLEGIA
     Dosage: ROUTE: GASTROSTOMY TUBE
     Route: 050
     Dates: start: 20060309, end: 20060603
  4. CLEXANE [Suspect]
     Dosage: ROUTE: GASTROSTOMY TUBE
     Route: 050
     Dates: start: 20060604, end: 20060619
  5. ASPIRIN [Suspect]
     Indication: HYPERTENSIVE HEART DISEASE
     Route: 048
     Dates: start: 20060309
  6. ASPIRIN [Suspect]
     Indication: CARDIAC FAILURE CONGESTIVE
     Route: 048
     Dates: start: 20060309
  7. RAMIPRIL [Concomitant]
     Route: 048
     Dates: start: 20060320, end: 20060512
  8. BELOC-ZOK [Concomitant]
     Route: 048
     Dates: start: 20060413, end: 20060522
  9. DAFALGAN [Concomitant]
     Route: 048
     Dates: start: 20060316, end: 20060508
  10. DIAMICRON [Concomitant]
     Route: 048
     Dates: start: 20060314, end: 20060508
  11. DUPHALAC [Concomitant]
     Route: 048
     Dates: start: 20060326, end: 20060608
  12. PARAGOL [Concomitant]
     Route: 048
     Dates: start: 20060424
  13. FENISTIL [Concomitant]
     Route: 061
     Dates: start: 20060505, end: 20060508
  14. FLATULEX [Concomitant]
     Dosage: DOSE: 2 DF
     Route: 048
     Dates: start: 20060404, end: 20060508
  15. DOSPIR [Concomitant]
     Route: 055
     Dates: start: 20060309
  16. CALCIUM-SANDOZ [Concomitant]
     Route: 048
     Dates: start: 20060412
  17. LOCOID [Concomitant]
     Route: 061
     Dates: start: 20060520
  18. MOTILIUM [Concomitant]
     Route: 060
     Dates: start: 20060402, end: 20060508
  19. NEXIUM [Concomitant]
     Route: 048
     Dates: start: 20050320, end: 20060515
  20. NORVASC [Concomitant]
     Route: 048
     Dates: start: 20060428, end: 20060502
  21. PADMA 28 [Concomitant]
     Route: 048
     Dates: start: 20060410, end: 20060508
  22. TORSEMIDE [Concomitant]
     Route: 048
     Dates: start: 20060309
  23. TRIATEC [Concomitant]
     Route: 048
     Dates: start: 20060320, end: 20060512
  24. VACCINES [Concomitant]
     Route: 048
     Dates: start: 20060320, end: 20060508

REACTIONS (6)
  - ANAEMIA [None]
  - DRUG INTERACTION [None]
  - EOSINOPHILIA [None]
  - MUSCLE HAEMORRHAGE [None]
  - PRURITUS [None]
  - RASH MACULO-PAPULAR [None]
